FAERS Safety Report 7437397 (Version 2)
Quarter: 2014Q1

REPORT INFORMATION
  Report Type: Spontaneous
  Country: US (occurrence: None)
  Receive Date: 20100611
  Receipt Date: 20140108
  Transmission Date: 20141002
  Serious: Yes (Other)
  Sender: FDA-Public Use
  Company Number: 2009S1006348

PATIENT
  Age: 72 Year
  Sex: Female

DRUGS (12)
  1. SODIUM PHOSPHATE [Suspect]
     Indication: COLONOSCOPY
     Dosage: 90 ML;TOTAL; PO
     Route: 048
     Dates: start: 20041116, end: 20041117
  2. GLYBURIDE [Concomitant]
  3. ATENOLOL [Concomitant]
  4. ZOCOR [Concomitant]
  5. NORVASC [Concomitant]
  6. NOVOLOG [Concomitant]
  7. PRILOSEC [Concomitant]
  8. NOVOLIN /00030501/ [Concomitant]
  9. LANTUS [Concomitant]
  10. NITROGLYCERIN [Concomitant]
  11. HYDROCHLOROTHIAZIDE [Concomitant]
  12. AVAPRO [Concomitant]

REACTIONS (2)
  - Renal failure chronic [None]
  - Renal impairment [None]
